FAERS Safety Report 5001076-3 (Version None)
Quarter: 2006Q2

REPORT INFORMATION
  Report Type: 
  Country: None (occurrence: None)
  Receive Date: 20060512
  Receipt Date: 20060503
  Transmission Date: 20061013
  Serious: Yes (Hospitalization, Other)
  Sender: FDA-Public Use
  Company Number: FR-BRISTOL-MYERS SQUIBB COMPANY-13367016

PATIENT
  Age: 12 Year
  Sex: Female
  Weight: 24 kg

DRUGS (7)
  1. COUMADIN [Suspect]
     Indication: MITRAL VALVE REPLACEMENT
     Route: 048
     Dates: end: 20060317
  2. BETAMETHASONE [Interacting]
     Dates: start: 20060312, end: 20060317
  3. AUGMENTIN '125' [Interacting]
     Dates: start: 20060312, end: 20060317
  4. ACETAMINOPHEN [Interacting]
     Indication: EAR INFECTION
  5. MICROPAKINE [Concomitant]
  6. URBANYL [Concomitant]
     Indication: EPILEPSY
  7. CORDARONE [Concomitant]
     Indication: ARRHYTHMIA

REACTIONS (5)
  - DRUG INTERACTION [None]
  - EAR INFECTION [None]
  - HAEMATOMA [None]
  - INTERNATIONAL NORMALISED RATIO INCREASED [None]
  - PROTHROMBIN TIME SHORTENED [None]
